FAERS Safety Report 4878815-5 (Version None)
Quarter: 2006Q1

REPORT INFORMATION
  Report Type: 
  Country: None (occurrence: None)
  Receive Date: 20060110
  Receipt Date: 20060110
  Transmission Date: 20060701
  Serious: No
  Sender: FDA-Public Use
  Company Number: None

PATIENT
  Age: 73 Year
  Sex: Female

DRUGS (1)
  1. GLIMEPIRIDE [Suspect]
     Indication: DIABETES MELLITUS
     Dosage: ORAL 4 TABLETS DAILY
     Route: 048
     Dates: start: 20051201

REACTIONS (2)
  - DIABETES MELLITUS INADEQUATE CONTROL [None]
  - NAUSEA [None]
